FAERS Safety Report 5271490-X (Version None)
Quarter: 2007Q1

REPORT INFORMATION
  Report Type: 
  Country: None (occurrence: None)
  Receive Date: 20070316
  Receipt Date: 20070301
  Transmission Date: 20070707
  Serious: Yes (Disabling)
  Sender: FDA-Public Use
  Company Number: US-1162094

PATIENT

DRUGS (1)
  1. ALCAINE [Suspect]
     Dosage: (OPHTHALMIC)
     Route: 047

REACTIONS (1)
  - BLINDNESS [None]
